FAERS Safety Report 5732314-7 (Version None)
Quarter: 2008Q2

REPORT INFORMATION
  Report Type: 
  Country: None (occurrence: None)
  Receive Date: 20080508
  Receipt Date: 20080414
  Transmission Date: 20081010
  Serious: No
  Sender: FDA-Public Use
  Company Number: US-BOEHRINGER INGELHEIM GMBH, GERMANY-2008-BP-05816BP

PATIENT
  Sex: Male

DRUGS (7)
  1. FLOMAX [Suspect]
     Indication: MICTURITION URGENCY
     Route: 048
     Dates: start: 20080407
  2. METFORMIN HCL [Concomitant]
     Indication: DIABETES MELLITUS
  3. GLYBURIDE [Concomitant]
     Indication: DIABETES MELLITUS
  4. PROSCAR [Concomitant]
  5. OXYBUTIN [Concomitant]
  6. TYSABRI [Concomitant]
     Indication: MULTIPLE SCLEROSIS
     Route: 042
  7. LOVASTATIN [Concomitant]

REACTIONS (1)
  - ABNORMAL FAECES [None]
